FAERS Safety Report 6228312-X (Version None)
Quarter: 2009Q2

REPORT INFORMATION
  Report Type: 
  Country: None (occurrence: None)
  Receive Date: 20090612
  Receipt Date: 20090605
  Transmission Date: 20091009
  Serious: Yes (Hospitalization)
  Sender: FDA-Public Use
  Company Number: US-AVENTIS-200914932US

PATIENT
  Age: 79 Year
  Sex: Male

DRUGS (3)
  1. LANTUS [Suspect]
     Route: 058
     Dates: start: 20090501
  2. OPTICLIK (INSULIN INJECTION PEN) [Suspect]
     Dates: start: 20090501
  3. OPTICLIK GREY [Suspect]
     Dates: start: 20090501

REACTIONS (5)
  - BLOOD GLUCOSE INCREASED [None]
  - DRUG DELIVERY SYSTEM MALFUNCTION [None]
  - MENTAL STATUS CHANGES [None]
  - PYREXIA [None]
  - URINARY TRACT INFECTION [None]
